FAERS Safety Report 4712256-6 (Version None)
Quarter: 2005Q3

REPORT INFORMATION
  Report Type: 
  Country: None (occurrence: None)
  Receive Date: 20050712
  Receipt Date: 20050616
  Transmission Date: 20060218
  Serious: Yes (Hospitalization)
  Sender: FDA-Public Use
  Company Number: US-GLAXOSMITHKLINE-B0385023A

PATIENT
  Age: 7 Year
  Sex: Female

DRUGS (3)
  1. SAWACILLIN [Suspect]
     Indication: STREPTOCOCCAL INFECTION
     Dosage: 250MG THREE TIMES PER DAY
     Route: 048
     Dates: start: 20050601, end: 20050608
  2. KETOTIFEN FUMARATE [Concomitant]
     Indication: RASH
     Route: 048
     Dates: start: 20050608, end: 20050615
  3. CLARITHROMYCIN [Concomitant]
     Indication: STREPTOCOCCAL INFECTION
     Route: 048
     Dates: start: 20050608, end: 20050609

REACTIONS (7)
  - ANOREXIA [None]
  - DRUG ERUPTION [None]
  - ERYTHEMA [None]
  - FACE OEDEMA [None]
  - FLUID INTAKE REDUCED [None]
  - PRURITUS [None]
  - PYREXIA [None]
